FAERS Safety Report 17168890 (Version 3)
Quarter: 2020Q1

REPORT INFORMATION
  Report Type: Spontaneous
  Country: BR (occurrence: BR)
  Receive Date: 20191218
  Receipt Date: 20200227
  Transmission Date: 20200409
  Serious: Yes (Death, Other)
  Sender: FDA-Public Use
  Company Number: BR-AMGEN-BRASP2019209942

PATIENT
  Age: 62 Year
  Sex: Male

DRUGS (1)
  1. ENBREL [Suspect]
     Active Substance: ETANERCEPT
     Indication: RHEUMATOID ARTHRITIS
     Dosage: UNK, QWK
     Route: 042

REACTIONS (11)
  - Osteoporosis [Unknown]
  - Off label use [Unknown]
  - Hypersensitivity [Unknown]
  - Arthralgia [Unknown]
  - Pruritus [Unknown]
  - Injury [Unknown]
  - Mass [Unknown]
  - Infarction [Fatal]
  - Spinal fracture [Unknown]
  - Incorrect route of product administration [Unknown]
  - Erythema [Unknown]
